FAERS Safety Report 5833641-5 (Version None)
Quarter: 2008Q3

REPORT INFORMATION
  Report Type: 
  Country: None (occurrence: None)
  Receive Date: 20080805
  Receipt Date: 20080724
  Transmission Date: 20090109
  Serious: Yes (Hospitalization)
  Sender: FDA-Public Use
  Company Number: SE-JNJFOC-20080705994

PATIENT

DRUGS (4)
  1. DOXORUBICIN HCL [Suspect]
     Indication: PANCREATIC CARCINOMA
     Route: 042
  2. STREPTOZOTOCIN [Suspect]
     Dosage: DAY 1 OF CYCLE
     Route: 065
  3. STREPTOZOTOCIN [Suspect]
     Indication: PANCREATIC CARCINOMA
     Dosage: 1ST COURSE
     Route: 065
  4. 5-HT3 [Suspect]
     Indication: PROPHYLAXIS OF NAUSEA AND VOMITING
     Route: 065

REACTIONS (1)
  - GASTRIC HAEMORRHAGE [None]
